FAERS Safety Report 5487635-2 (Version None)
Quarter: 2007Q4

REPORT INFORMATION
  Report Type: 
  Country: None (occurrence: None)
  Receive Date: 20071012
  Receipt Date: 20071012
  Transmission Date: 20080405
  Serious: Yes (Other)
  Sender: FDA-Public Use
  Company Number: None

PATIENT
  Sex: Female
  Weight: 50.7 kg

DRUGS (6)
  1. RISPERDAL [Suspect]
     Indication: BIPOLAR I DISORDER
     Dosage: 1 TABLET BID P.O.
     Route: 048
     Dates: end: 20061101
  2. RISPERDAL [Suspect]
     Indication: BIPOLAR I DISORDER
     Dosage: 1 TABLET BID P.O.
     Route: 048
     Dates: start: 20070924
  3. SEROQUEL [Suspect]
     Indication: OPPOSITIONAL DEFIANT DISORDER
     Dosage: 1 TABLET BID P.O.
     Route: 048
     Dates: start: 20061101, end: 20070924
  4. CONCERTA [Concomitant]
  5. LITHIUM [Concomitant]
  6. TRILEPTAL [Concomitant]

REACTIONS (3)
  - BLOOD PROLACTIN INCREASED [None]
  - GALACTORRHOEA [None]
  - PITUITARY TUMOUR BENIGN [None]
